FAERS Safety Report 12179561 (Version 3)
Quarter: 2022Q1

REPORT INFORMATION
  Report Type: Spontaneous
  Country: FR (occurrence: None)
  Receive Date: 20160314
  Receipt Date: 20220125
  Transmission Date: 20220423
  Serious: Yes (Death, Congenital Anomaly)
  Sender: FDA-Public Use
  Company Number: 2016SE27165

PATIENT
  Sex: Male

DRUGS (7)
  1. OMEPRAZOLE [Suspect]
     Active Substance: OMEPRAZOLE
     Indication: Gastrooesophageal reflux disease
     Route: 064
     Dates: start: 20150809, end: 20151215
  2. ASPIRIN DL-LYSINE [Suspect]
     Active Substance: ASPIRIN DL-LYSINE
     Indication: Systemic lupus erythematosus
     Route: 064
     Dates: start: 20150809, end: 20151215
  3. PLAQUENIL [Suspect]
     Active Substance: HYDROXYCHLOROQUINE SULFATE
     Indication: Systemic lupus erythematosus
     Route: 064
     Dates: start: 20150809, end: 20151215
  4. XANAX [Suspect]
     Active Substance: ALPRAZOLAM
     Indication: Anxiety disorder
     Route: 064
     Dates: start: 20150809, end: 20151215
  5. CALCIUM CARBONATE [Suspect]
     Active Substance: CALCIUM CARBONATE
     Indication: Osteoporosis prophylaxis
     Route: 064
     Dates: start: 20150809, end: 20151215
  6. WARFARIN SODIUM [Suspect]
     Active Substance: WARFARIN SODIUM
     Indication: Mitral valve replacement
     Route: 064
     Dates: start: 20150809, end: 20151005
  7. PREDNISONE [Suspect]
     Active Substance: PREDNISONE
     Indication: Systemic lupus erythematosus
     Route: 064
     Dates: start: 20150809, end: 20151215

REACTIONS (2)
  - Dandy-Walker syndrome [Fatal]
  - Congenital central nervous system anomaly [Fatal]

NARRATIVE: CASE EVENT DATE: 20151201
